FAERS Safety Report 15842800 (Version 1)
Quarter: 2018Q4

REPORT INFORMATION
  Report Type: Spontaneous
  Country: US (occurrence: US)
  Receive Date: 20181224
  Receipt Date: 20181224
  Transmission Date: 20190205
  Serious: No
  Sender: FDA-Public Use
  Company Number: None

PATIENT
  Age: 66 Year
  Sex: Female

DRUGS (1)
  1. NORDITROPIN [Suspect]
     Active Substance: SOMATROPIN
     Route: 058
     Dates: start: 201712

REACTIONS (3)
  - Product dose omission [None]
  - Inability to afford medication [None]
  - Hypoglycaemia [None]

NARRATIVE: CASE EVENT DATE: 20181224
